FAERS Safety Report 25213630 (Version 2)
Quarter: 2025Q2

REPORT INFORMATION
  Report Type: Spontaneous
  Country: JP (occurrence: JP)
  Receive Date: 20250418
  Receipt Date: 20250509
  Transmission Date: 20250716
  Serious: Yes (Death)
  Sender: BAYER HEALTHCARE PHARMACEUTICALS INC.
  Company Number: JP-BAYER-2025A053060

PATIENT
  Age: 80 Year
  Sex: Male
  Weight: 53.4 kg

DRUGS (8)
  1. NUBEQA [Suspect]
     Active Substance: DAROLUTAMIDE
     Indication: Hormone-dependent prostate cancer
     Dosage: 600 MG, BID
     Route: 048
     Dates: start: 20241001, end: 20250305
  2. DOCETAXEL [Suspect]
     Active Substance: DOCETAXEL
     Indication: Hormone-dependent prostate cancer
     Route: 041
     Dates: start: 20250107, end: 20250217
  3. PREDONINE [Concomitant]
     Active Substance: PREDNISOLONE
     Indication: Hormone-dependent prostate cancer
     Dosage: DAILY DOSE 10 MG
     Route: 048
     Dates: start: 20250107, end: 20250217
  4. TRAMADOL [Concomitant]
     Active Substance: TRAMADOL
     Indication: Pain
     Dosage: DAILY DOSE 75 MG
     Route: 048
     Dates: start: 20241005, end: 20250305
  5. CALCIUM CARBONATE\CHOLECALCIFEROL\MAGNESIUM CARBONATE [Concomitant]
     Active Substance: CALCIUM CARBONATE\CHOLECALCIFEROL\MAGNESIUM CARBONATE
     Indication: Prophylaxis
     Dosage: 1 DF, QD
     Route: 048
     Dates: start: 20250128, end: 20250305
  6. LINZESS [Concomitant]
     Active Substance: LINACLOTIDE
     Indication: Constipation
     Route: 048
     Dates: start: 20250110, end: 20250305
  7. CALCIUM POLYSTYRENE SULFONATE [Concomitant]
     Active Substance: CALCIUM POLYSTYRENE SULFONATE
     Indication: Hypokalaemia
     Route: 048
     Dates: start: 20250117, end: 20250305
  8. PEGFILGRASTIM [Concomitant]
     Active Substance: PEGFILGRASTIM
     Route: 058
     Dates: start: 20250204, end: 20250220

REACTIONS (4)
  - Interstitial lung disease [Fatal]
  - Pyrexia [None]
  - Neutrophil count decreased [None]
  - Dyspnoea [None]

NARRATIVE: CASE EVENT DATE: 20250101
